FAERS Safety Report 8737373 (Version 2)
Quarter: 2012Q4

REPORT INFORMATION
  Report Type: 
  Country: CA (occurrence: CA)
  Receive Date: 20120822
  Receipt Date: 20121008
  Transmission Date: 20130627
  Serious: Yes (Other)
  Sender: FDA-Public Use
  Company Number: CA-PFIZER INC-2012201054

PATIENT
  Age: 74 Year
  Sex: Female
  Weight: 61.22 kg

DRUGS (16)
  1. LYRICA [Suspect]
     Indication: PAIN
     Dosage: 25 mg, 1x/day
     Dates: start: 20120814, end: 20120815
  2. ATIVAN [Concomitant]
     Dosage: 0.5 mg, as needed
  3. LOPRESSOR [Concomitant]
     Indication: HYPERTENSION
     Dosage: 200 UNK, 1x/day
  4. LOZIDE [Concomitant]
     Indication: HYPERTENSION
     Dosage: 1.25 mg, 1x/day
  5. ASPIRINE [Concomitant]
     Dosage: 81 mg, 1x/day
  6. MICRO-K [Concomitant]
     Indication: HYPOKALAEMIA
     Dosage: 600 mg, 2x/day
     Dates: start: 2010
  7. ESTRADOT [Concomitant]
     Indication: HORMONE THERAPY
     Dosage: 37.5 mg, 2x/week
  8. DIOVAN ^NOVARTIS^ [Concomitant]
     Indication: HYPERTENSION
     Dosage: 80 mg, 1x/day
     Dates: start: 2011
  9. OMEGA-3 [Concomitant]
     Dosage: UNK
  10. GLUCOSAMINE [Concomitant]
     Dosage: UNK
  11. GARLIC [Concomitant]
     Dosage: UNK
  12. VITAMIN A AND D [Concomitant]
     Dosage: 800 mg, 1x/day
  13. VITAMIN E [Concomitant]
     Dosage: 400 mg, 1x/day
  14. CALCIUM [Concomitant]
     Dosage: 650 mg, 1x/day
  15. CENTRUM SILVER [Concomitant]
     Dosage: UNK
  16. B50 [Concomitant]
     Dosage: UNK

REACTIONS (5)
  - Muscular weakness [Recovered/Resolved]
  - Dysstasia [Recovered/Resolved]
  - Hypersomnia [Recovered/Resolved]
  - Sensory loss [Recovered/Resolved]
  - Fatigue [Recovered/Resolved]
